FAERS Safety Report 5968671-6 (Version None)
Quarter: 2008Q4

REPORT INFORMATION
  Report Type: 
  Country: None (occurrence: None)
  Receive Date: 20081126
  Receipt Date: 20081118
  Transmission Date: 20090506
  Serious: Yes (Other)
  Sender: FDA-Public Use
  Company Number: JP-BRISTOL-MYERS SQUIBB COMPANY-14411839

PATIENT
  Age: 56 Year
  Sex: Male
  Weight: 80 kg

DRUGS (3)
  1. ABILIFY [Suspect]
     Indication: SCHIZOPHRENIA
     Route: 048
     Dates: start: 20071219
  2. LITHIUM CARBONATE [Concomitant]
     Dosage: DOSAGE FORM- TABLETS
     Dates: start: 20070417
  3. DEPAKENE [Concomitant]
     Dosage: DEPAKENE-R; DOSAGE FORM- SLOW RELEASE TABLET
     Dates: start: 20070417

REACTIONS (3)
  - DELUSION [None]
  - HALLUCINATION [None]
  - INSOMNIA [None]
